FAERS Safety Report 5192196-1 (Version None)
Quarter: 2006Q4

REPORT INFORMATION
  Report Type: 
  Country: None (occurrence: None)
  Receive Date: 20061220
  Receipt Date: 20061211
  Transmission Date: 20070319
  Serious: Yes (Other)
  Sender: FDA-Public Use
  Company Number: 2006141638

PATIENT
  Age: 65 Year
  Sex: Male

DRUGS (1)
  1. PEGAPTANIB SODIUM             (PEGAPTANIB SODIUM) [Suspect]
     Indication: MACULAR DEGENERATION
     Dosage: INTRAVENOUS
     Route: 042
     Dates: start: 20060601

REACTIONS (3)
  - BLINDNESS UNILATERAL [None]
  - MACULAR DEGENERATION [None]
  - RETINAL HAEMORRHAGE [None]
